FAERS Safety Report 24837089 (Version 5)
Quarter: 2025Q4

REPORT INFORMATION
  Report Type: Spontaneous
  Country: US (occurrence: US)
  Receive Date: 20250113
  Receipt Date: 20251120
  Transmission Date: 20260118
  Serious: Yes (Hospitalization, Other)
  Sender: SANOFI AVENTIS
  Company Number: US-SA-2025SA010138

PATIENT
  Age: 54 Year
  Sex: Female

DRUGS (4)
  1. DUPIXENT [Suspect]
     Active Substance: DUPILUMAB
     Indication: Asthma
     Dosage: 600 MG, 1X
     Route: 058
     Dates: start: 20241121, end: 20241121
  2. DUPIXENT [Suspect]
     Active Substance: DUPILUMAB
     Dosage: 300 MG, QOW
     Route: 058
     Dates: start: 202412, end: 2025
  3. DUPIXENT [Suspect]
     Active Substance: DUPILUMAB
     Dosage: 300 MG, QOW
     Route: 058
     Dates: start: 2025
  4. XOLAIR [Concomitant]
     Active Substance: OMALIZUMAB
     Dosage: UNK

REACTIONS (17)
  - Pneumonia [Recovered/Resolved]
  - Nausea [Not Recovered/Not Resolved]
  - Dizziness [Not Recovered/Not Resolved]
  - Pharyngitis streptococcal [Recovered/Resolved]
  - Bone pain [Not Recovered/Not Resolved]
  - Eye haemorrhage [Recovered/Resolved]
  - Cough [Recovering/Resolving]
  - Dyspnoea [Recovering/Resolving]
  - Illness [Unknown]
  - Influenza [Recovered/Resolved]
  - Pyrexia [Recovered/Resolved]
  - Pain [Recovered/Resolved]
  - Respiratory syncytial virus infection [Recovered/Resolved]
  - Myalgia [Not Recovered/Not Resolved]
  - Injection site pain [Not Recovered/Not Resolved]
  - Arthralgia [Not Recovered/Not Resolved]
  - Asthma [Unknown]

NARRATIVE: CASE EVENT DATE: 20240101
